FAERS Safety Report 6667835-6 (Version None)
Quarter: 2010Q2

REPORT INFORMATION
  Report Type: 
  Country: None (occurrence: None)
  Receive Date: 20100405
  Receipt Date: 20100324
  Transmission Date: 20101027
  Serious: Yes (Other)
  Sender: FDA-Public Use
  Company Number: US-PFIZER INC-2010038541

PATIENT
  Sex: Female
  Weight: 113.38 kg

DRUGS (6)
  1. LYRICA [Suspect]
     Indication: NERVE INJURY
     Dosage: 150 MG, 2X/DAY
     Route: 048
     Dates: start: 20070101
  2. MS CONTIN [Concomitant]
     Dosage: UNK
  3. TRAMADOL [Concomitant]
     Dosage: UNK
  4. DARVOCET [Concomitant]
     Dosage: UNK
  5. MORPHINE [Concomitant]
     Dosage: 100 MG, 3X/DAY
  6. DILAUDID [Concomitant]
     Dosage: 16 MG, AS NEEDED

REACTIONS (2)
  - DIABETES MELLITUS [None]
  - THYROID DISORDER [None]
